FAERS Safety Report 4691488-X (Version None)
Quarter: 2005Q2

REPORT INFORMATION
  Report Type: 
  Country: None (occurrence: None)
  Receive Date: 20050608
  Receipt Date: 20040429
  Transmission Date: 20051028
  Serious: Yes (Other)
  Sender: FDA-Public Use
  Company Number: 366121

PATIENT
  Age: 34 Year
  Sex: Female

DRUGS (1)
  1. ACCUTANE [Suspect]
     Dates: start: 20030612, end: 20030915

REACTIONS (4)
  - BACK PAIN [None]
  - CONVULSION [None]
  - MUSCULAR WEAKNESS [None]
  - MUSCULOSKELETAL STIFFNESS [None]
